FAERS Safety Report 25565711 (Version 1)
Quarter: 2025Q3

REPORT INFORMATION
  Report Type: Spontaneous
  Country: US (occurrence: None)
  Receive Date: 20250715
  Receipt Date: 20250715
  Transmission Date: 20251020
  Serious: Yes (Life-Threatening, Hospitalization)
  Sender: FDA-CTU
  Company Number: None

PATIENT
  Age: 66 Year
  Sex: Female
  Weight: 66.15 kg

DRUGS (5)
  1. ALENDRONATE SODIUM [Suspect]
     Active Substance: ALENDRONATE SODIUM
     Indication: Osteopenia
     Route: 048
     Dates: start: 20231101, end: 20250711
  2. Metoprolol 50mg ER bid [Concomitant]
  3. Hydrochloride 25mg daily [Concomitant]
  4. Vitamin C 1000mg daily [Concomitant]
  5. Man calcium zinc [Concomitant]

REACTIONS (2)
  - Deep vein thrombosis [None]
  - Pulmonary embolism [None]

NARRATIVE: CASE EVENT DATE: 20250711
